FAERS Safety Report 7395285-6 (Version None)
Quarter: 2011Q1

REPORT INFORMATION
  Report Type: 
  Country: None (occurrence: None)
  Receive Date: 20110331
  Receipt Date: 20110331
  Transmission Date: 20110831
  Serious: No
  Sender: FDA-Public Use
  Company Number: None

PATIENT
  Age: 62 Year
  Sex: Female
  Weight: 82.7 kg

DRUGS (1)
  1. ACTONEL [Suspect]
     Indication: OSTEOPOROSIS
     Dosage: 150 MG TABLET 1 X MONTHLY ORAL
     Route: 048
     Dates: start: 20110328

REACTIONS (5)
  - CHILLS [None]
  - DIARRHOEA [None]
  - HEADACHE [None]
  - BONE PAIN [None]
  - PYREXIA [None]
